FAERS Safety Report 4573928-X (Version None)
Quarter: 2005Q1

REPORT INFORMATION
  Report Type: 
  Country: None (occurrence: None)
  Receive Date: 20050208
  Receipt Date: 20041008
  Transmission Date: 20050727
  Serious: No
  Sender: FDA-Public Use
  Company Number: US-GLAXOSMITHKLINE-A0529110A

PATIENT
  Age: 32 Year
  Sex: Female

DRUGS (5)
  1. PAXIL [Suspect]
     Indication: PANIC DISORDER
     Dosage: 10MG PER DAY
     Route: 048
     Dates: start: 20040701
  2. INDERAL [Concomitant]
  3. INDOCIN [Concomitant]
  4. ALLOPURINOL [Concomitant]
  5. XANAX [Concomitant]

REACTIONS (1)
  - HYPOAESTHESIA [None]
